FAERS Safety Report 24236943 (Version 1)
Quarter: 2024Q3

REPORT INFORMATION
  Report Type: Report from Study
  Country: FR (occurrence: FR)
  Receive Date: 20240822
  Receipt Date: 20240822
  Transmission Date: 20241017
  Serious: Yes (Other)
  Sender: SERVIER
  Company Number: FR-SERVIER-S24010063

PATIENT

DRUGS (8)
  1. PEGASPARGASE [Suspect]
     Active Substance: PEGASPARGASE
     Indication: Acute lymphocytic leukaemia
     Dosage: 3975 IU, D6
     Route: 042
     Dates: start: 20200615
  2. DEXAMETHASONE [Suspect]
     Active Substance: DEXAMETHASONE
     Indication: Acute lymphocytic leukaemia
     Dosage: 31.8 MG, D1-D5
     Route: 048
     Dates: start: 20200610, end: 20200614
  3. CYTARABINE [Suspect]
     Active Substance: CYTARABINE
     Indication: Acute lymphocytic leukaemia
     Dosage: 6350 MG, D1, D2
     Route: 042
     Dates: start: 20200610, end: 20200611
  4. CYTARABINE [Suspect]
     Active Substance: CYTARABINE
     Dosage: 30 MG, D5
     Route: 037
     Dates: start: 20200614, end: 20200614
  5. MITOXANTRONE [Suspect]
     Active Substance: MITOXANTRONE HYDROCHLORIDE
     Indication: Acute lymphocytic leukaemia
     Dosage: 12.5 MG, D3, D4
     Route: 042
     Dates: start: 20200612, end: 20200613
  6. ETOPOSIDE [Suspect]
     Active Substance: ETOPOSIDE
     Indication: Acute lymphocytic leukaemia
     Dosage: 239 MG, D3-D5
     Route: 042
     Dates: start: 20200612, end: 20200614
  7. HYDROCORTISONE HEMISUCCINATE [Suspect]
     Active Substance: HYDROCORTISONE HEMISUCCINATE
     Indication: Acute lymphocytic leukaemia
     Dosage: 15 MG, D5
     Route: 037
     Dates: start: 20200614, end: 20200614
  8. METHOTREXATE [Suspect]
     Active Substance: METHOTREXATE
     Indication: Acute lymphocytic leukaemia
     Dosage: 15 MG, D5
     Route: 037
     Dates: start: 20200614, end: 20200614

REACTIONS (1)
  - Hyperlipidaemia [Recovered/Resolved]

NARRATIVE: CASE EVENT DATE: 20200706
